FAERS Safety Report 8021844-3 (Version None)
Quarter: 2012Q1

REPORT INFORMATION
  Report Type: 
  Country: None (occurrence: None)
  Receive Date: 20120104
  Receipt Date: 20120102
  Transmission Date: 20120608
  Serious: Yes (Hospitalization, Other)
  Sender: FDA-Public Use
  Company Number: GR-ELI_LILLY_AND_COMPANY-GR201112002464

PATIENT
  Age: 70 Year
  Sex: Female

DRUGS (7)
  1. DIGOXIN [Concomitant]
     Indication: ATRIAL FIBRILLATION
     Dosage: UNK
     Route: 048
     Dates: end: 20111101
  2. FORTEO [Suspect]
     Indication: OSTEOPOROSIS
     Dosage: 20 UG, QD
     Route: 058
     Dates: start: 20110901
  3. ARAVA [Concomitant]
     Indication: RHEUMATOID ARTHRITIS
     Dosage: 10 MG, QD
  4. DIOVAN HCT [Concomitant]
     Indication: ATRIAL FIBRILLATION
     Route: 048
  5. CELECTOL [Concomitant]
     Indication: ATRIAL FIBRILLATION
     Dosage: UNK
     Route: 048
     Dates: end: 20111101
  6. CALCIORAL D3 [Concomitant]
     Indication: OSTEOPOROSIS
     Dosage: UNK
     Route: 048
  7. PREDNISOLONE [Concomitant]
     Indication: RHEUMATOID ARTHRITIS
     Dosage: 10 MG, QD
     Route: 048

REACTIONS (1)
  - TOXICITY TO VARIOUS AGENTS [None]
